FAERS Safety Report 9011372 (Version 2)
Quarter: 2014Q1

REPORT INFORMATION
  Report Type: Spontaneous
  Country: US (occurrence: US)
  Receive Date: 20130108
  Receipt Date: 20140211
  Transmission Date: 20141002
  Serious: No
  Sender: FDA-Public Use
  Company Number: US-PFIZER INC-2013002842

PATIENT
  Age: 50 Year
  Sex: Male
  Weight: 124 kg

DRUGS (24)
  1. CELEBREX [Suspect]
     Indication: INFLAMMATION
     Dosage: 200 MG, DAILY (ONCE A DAY)
     Route: 048
     Dates: start: 1999
  2. FLONASE [Concomitant]
     Indication: DYSPNOEA
     Dosage: 50 UG, DAILY
  3. FLONASE [Concomitant]
     Indication: ASTHMA
  4. FLONASE [Concomitant]
     Indication: CHRONIC OBSTRUCTIVE PULMONARY DISEASE
  5. METOPROLOL [Concomitant]
     Indication: CARDIAC DISORDER
     Dosage: 25 MG, 2X/DAY
     Route: 048
  6. METOPROLOL [Concomitant]
     Indication: BLOOD PRESSURE ABNORMAL
  7. ASPIRIN [Concomitant]
     Indication: CARDIAC DISORDER
     Dosage: 325 MG, 1X/DAY (AT NIGHT)
  8. TAMSULOSIN [Concomitant]
     Indication: MICTURITION DISORDER
     Dosage: 0.41 MG, DAILY
     Route: 048
  9. LISINOPRIL [Concomitant]
     Indication: CARDIAC DISORDER
     Dosage: 10 MG, 1X/DAY (1 IN MORNING)
     Route: 048
  10. CITALOPRAM [Concomitant]
     Indication: DEPRESSION
     Dosage: 40 MG, 1X/DAY (IN MORNING)
     Route: 048
  11. ZOLPIDEM [Concomitant]
     Indication: SLEEP DISORDER
     Dosage: 10 MG, 1X/DAY (AT NIGHT)
     Route: 048
  12. ADVAIR DISKUS [Concomitant]
     Indication: DYSPNOEA
     Dosage: 250/50 UG, 2X/DAY
  13. ADVAIR DISKUS [Concomitant]
     Indication: ASTHMA
  14. ADVAIR DISKUS [Concomitant]
     Indication: CHRONIC OBSTRUCTIVE PULMONARY DISEASE
  15. ALBUTEROL [Concomitant]
     Dosage: 90 UG, AS NEEDED
  16. PSEUDOEPHEDRINE [Concomitant]
     Dosage: UNK, (12 HOUR X 1AT NIGHT )
  17. LORATADINE W/PSEUDOEPHEDRINE [Concomitant]
     Dosage: ONCE DAILY
  18. HYDROCODONE W/ACETAMINOPHEN [Concomitant]
     Dosage: 325 UNK, AS NEEDED
  19. NIACIN [Concomitant]
     Dosage: 1000 MG, 2X/DAY (AT NIGHT)
  20. TIZANIDINE [Concomitant]
     Dosage: 4 MG, 3X/DAY OR PRN
  21. TYLENOL [Concomitant]
     Indication: ARTHRITIS
     Dosage: 650 MG, 2X/DAY OR PRN
  22. VITAMIN C [Concomitant]
     Dosage: 1000 MG, 1X/DAY (IN MORNING)
  23. DUONEB [Concomitant]
     Dosage: UNK, AS NEEDED
  24. GLUCOSAMINE HYDROCHLORIDE/CHONDROITIN SULFATE [Concomitant]
     Dosage: 1500/1250, 2X/DAY

REACTIONS (1)
  - Drug resistance [Unknown]
